FAERS Safety Report 6868459-8 (Version None)
Quarter: 2010Q3

REPORT INFORMATION
  Report Type: 
  Country: None (occurrence: None)
  Receive Date: 20100722
  Receipt Date: 20080528
  Transmission Date: 20110219
  Serious: No
  Sender: FDA-Public Use
  Company Number: US-PFIZER INC-2008046454

PATIENT
  Sex: Male
  Weight: 86.18 kg

DRUGS (5)
  1. CHANTIX [Suspect]
     Indication: SMOKING CESSATION THERAPY
     Dates: start: 20080515
  2. ALL OTHER THERAPEUTIC PRODUCTS [Concomitant]
  3. ZINC [Concomitant]
  4. VITAMIN B [Concomitant]
  5. VITAMINS [Concomitant]

REACTIONS (3)
  - INSOMNIA [None]
  - NAUSEA [None]
  - SOMNOLENCE [None]
